FAERS Safety Report 9043307 (Version 1)
Quarter: 2013Q1

REPORT INFORMATION
  Report Type: Report from Study
  Country: US (occurrence: US)
  Receive Date: 20130129
  Receipt Date: 20130129
  Transmission Date: 20140127
  Serious: No
  Sender: FDA-Public Use
  Company Number: US-ABBOTT-12P-163-0911098-00

PATIENT
  Sex: Female
  Weight: 50.85 kg

DRUGS (9)
  1. HUMIRA 40 MG/0.8 ML PEN [Suspect]
     Indication: RHEUMATOID ARTHRITIS
     Route: 058
     Dates: start: 201111
  2. OLAY COMPLETE ALL DAY UV MOISTURIZER [Suspect]
     Indication: DRY SKIN
  3. METHOTREXATE [Concomitant]
     Indication: RHEUMATOID ARTHRITIS
     Route: 048
  4. LEFLUNOMIDE [Concomitant]
     Indication: RHEUMATOID ARTHRITIS
  5. ATENOLOL [Concomitant]
     Indication: CARDIAC STRESS TEST ABNORMAL
  6. ATENOLOL [Concomitant]
     Indication: TREMOR
  7. FOLIC ACID [Concomitant]
     Indication: VITAMIN SUPPLEMENTATION
  8. SULFASALAZINE [Concomitant]
     Indication: RHEUMATOID ARTHRITIS
  9. VOLTAREN GEL [Concomitant]
     Indication: ARTHRALGIA

REACTIONS (5)
  - Dry skin [Not Recovered/Not Resolved]
  - Skin exfoliation [Not Recovered/Not Resolved]
  - Eyelid pain [Not Recovered/Not Resolved]
  - Paranasal sinus hypersecretion [Not Recovered/Not Resolved]
  - Sinus headache [Not Recovered/Not Resolved]
